FAERS Safety Report 6980695-9 (Version None)
Quarter: 2010Q3

REPORT INFORMATION
  Report Type: 
  Country: None (occurrence: None)
  Receive Date: 20100914
  Receipt Date: 20100907
  Transmission Date: 20110219
  Serious: Yes (Hospitalization)
  Sender: FDA-Public Use
  Company Number: US-SANOFI-AVENTIS-2010SA054170

PATIENT
  Age: 74 Year
  Sex: Female

DRUGS (1)
  1. MULTAQ [Suspect]
     Route: 048
     Dates: start: 20100623

REACTIONS (2)
  - CEREBROVASCULAR ACCIDENT [None]
  - OFF LABEL USE [None]
